FAERS Safety Report 25921059 (Version 2)
Quarter: 2025Q4

REPORT INFORMATION
  Report Type: Report from Study
  Country: CA (occurrence: CA)
  Receive Date: 20251014
  Receipt Date: 20251212
  Transmission Date: 20260118
  Serious: Yes (Other)
  Sender: PFIZER
  Company Number: CA-PFIZER INC-202500164300

PATIENT
  Age: 45 Year
  Sex: Female
  Weight: 76 kg

DRUGS (6)
  1. IXIFI [Suspect]
     Active Substance: INFLIXIMAB-QBTX
     Indication: Crohn^s disease
     Dosage: 700 MG, EVERY 8 WEEKS
     Route: 042
     Dates: start: 20250619
  2. IXIFI [Suspect]
     Active Substance: INFLIXIMAB-QBTX
     Dosage: 700 MG, EVERY 8 WEEKS
     Route: 042
     Dates: start: 20250814
  3. IXIFI [Suspect]
     Active Substance: INFLIXIMAB-QBTX
     Dosage: 700 MG, EVERY 8 WEEKS
     Route: 042
     Dates: start: 20251009
  4. IXIFI [Suspect]
     Active Substance: INFLIXIMAB-QBTX
     Dosage: EVERY 8 WEEKS
     Route: 042
     Dates: start: 20251205
  5. METHOTREXATE [Concomitant]
     Active Substance: METHOTREXATE
     Dosage: 7500 UG
  6. HYDROXYCHLOROQUINE [Concomitant]
     Active Substance: HYDROXYCHLOROQUINE
     Dosage: UNK

REACTIONS (5)
  - Hypertension [Not Recovered/Not Resolved]
  - Drain placement [Recovering/Resolving]
  - Arthralgia [Not Recovered/Not Resolved]
  - Anal fissure [Not Recovered/Not Resolved]
  - Condition aggravated [Not Recovered/Not Resolved]

NARRATIVE: CASE EVENT DATE: 20250814
